FAERS Safety Report 5719957-1 (Version None)
Quarter: 2008Q2

REPORT INFORMATION
  Report Type: 
  Country: None (occurrence: None)
  Receive Date: 20080428
  Receipt Date: 20070501
  Transmission Date: 20081010
  Serious: No
  Sender: FDA-Public Use
  Company Number: US-AMGEN-US222568

PATIENT
  Sex: Male
  Weight: 60 kg

DRUGS (8)
  1. SENSIPAR [Suspect]
     Indication: DRUG USE FOR UNKNOWN INDICATION
     Route: 048
     Dates: start: 20070504
  2. PROGRAF [Suspect]
     Route: 065
     Dates: start: 20070419
  3. ACYCLOVIR [Suspect]
     Route: 065
     Dates: start: 20070419
  4. SULFAMETHOXAZOLE AND TRIMETHOPRIM [Suspect]
     Route: 065
     Dates: start: 20070419
  5. CELLCEPT [Suspect]
     Route: 065
     Dates: start: 20070419
  6. METOPROLOL TARTRATE [Suspect]
     Route: 065
     Dates: start: 20040601
  7. OMEPRAZOLE [Suspect]
     Route: 065
     Dates: start: 20070419
  8. CLONIDINE HCL [Concomitant]
     Route: 065
     Dates: start: 20070216

REACTIONS (2)
  - ABDOMINAL PAIN [None]
  - DIARRHOEA [None]
